FAERS Safety Report 6326846-0 (Version None)
Quarter: 2009Q3

REPORT INFORMATION
  Report Type: 
  Country: None (occurrence: None)
  Receive Date: 20090821
  Receipt Date: 20090811
  Transmission Date: 20100115
  Serious: Yes (Life-Threatening, Hospitalization)
  Sender: FDA-Public Use
  Company Number: OMPQ-NO-0908S-0712

PATIENT
  Age: 56 Year
  Sex: Female
  Weight: 80 kg

DRUGS (9)
  1. OMNIPAQUE 300 [Suspect]
     Indication: SEPSIS
     Dosage: 70 ML, SINGLE DOSE, I.V.
     Route: 042
     Dates: start: 20090811, end: 20090811
  2. NORVASC [Concomitant]
  3. DAFLON [Concomitant]
  4. FLUMUCIL [Concomitant]
  5. FLAGYL [Concomitant]
  6. GLUCOPHAGE [Concomitant]
  7. DIAMICRON [Concomitant]
  8. ASPIRIN [Concomitant]
  9. ACTRAPID INSULIN [Concomitant]

REACTIONS (1)
  - CARDIO-RESPIRATORY ARREST [None]
